FAERS Safety Report 12769143 (Version 1)
Quarter: 2016Q3

REPORT INFORMATION
  Report Type: Report from Study
  Country: US (occurrence: US)
  Receive Date: 20160921
  Receipt Date: 20160921
  Transmission Date: 20161109
  Serious: No
  Sender: FDA-Public Use
  Company Number: US-THERATECHNOLOGIES, INC.-TH-2016-00114

PATIENT
  Age: 63 Year
  Sex: Male
  Weight: 97.61 kg

DRUGS (1)
  1. EGRIFTA [Suspect]
     Active Substance: TESAMORELIN
     Indication: WEIGHT INCREASED
     Dosage: 2 MILLIGRAM
     Route: 058
     Dates: start: 20160303, end: 20160907

REACTIONS (5)
  - Thirst [Recovering/Resolving]
  - Blood glucose increased [Not Recovered/Not Resolved]
  - Urine output increased [Recovering/Resolving]
  - Abnormal loss of weight [Not Recovered/Not Resolved]
  - Polydipsia [Recovering/Resolving]

NARRATIVE: CASE EVENT DATE: 201608
